FAERS Safety Report 5231376-3 (Version None)
Quarter: 2007Q1

REPORT INFORMATION
  Report Type: 
  Country: None (occurrence: None)
  Receive Date: 20070206
  Receipt Date: 20070126
  Transmission Date: 20070707
  Serious: Yes (Other)
  Sender: FDA-Public Use
  Company Number: US-ROCHE-480154

PATIENT
  Age: 17 Year
  Sex: Male

DRUGS (3)
  1. ACCUTANE [Suspect]
     Indication: DRUG USE FOR UNKNOWN INDICATION
     Dosage: TAKEN ONE TO TWO TIMES A WEEK
     Route: 065
  2. ACCUTANE [Suspect]
     Route: 065
  3. ACCUTANE [Suspect]
     Dosage: REDUCED TO BEING TAKEN DAILY
     Route: 065

REACTIONS (3)
  - ANGER [None]
  - PERSONALITY CHANGE [None]
  - SUICIDE ATTEMPT [None]
